FAERS Safety Report 10369863 (Version 6)
Quarter: 2014Q4

REPORT INFORMATION
  Report Type: Report from Study
  Country: DE (occurrence: DE)
  Receive Date: 20140808
  Receipt Date: 20141215
  Transmission Date: 20150528
  Serious: Yes (Hospitalization, Other)
  Sender: FDA-Public Use
  Company Number: DE-ROCHE-1429133

PATIENT
  Age: 66 Year
  Sex: Female
  Weight: 56.4 kg

DRUGS (23)
  1. RITUXIMAB [Suspect]
     Active Substance: RITUXIMAB
     Indication: DIFFUSE LARGE B-CELL LYMPHOMA
     Dosage: VISIT 1?DATE OF LAST DOSE: 21/JUL/2014
     Route: 042
     Dates: start: 20140408
  2. CYCLOPHOSPHAMIDE. [Suspect]
     Active Substance: CYCLOPHOSPHAMIDE
     Route: 042
     Dates: start: 20140612, end: 20140613
  3. ALLOPURINOL. [Concomitant]
     Active Substance: ALLOPURINOL
     Indication: URATE NEPHROPATHY
     Route: 048
     Dates: start: 20140326
  4. VINCRISTINE [Suspect]
     Active Substance: VINCRISTINE
     Indication: DIFFUSE LARGE B-CELL LYMPHOMA
     Route: 042
     Dates: start: 20140409, end: 20140704
  5. PREDNISOLONE ACETATE. [Concomitant]
     Active Substance: PREDNISOLONE ACETATE
     Indication: PROPHYLAXIS
     Dosage: BEFORE ADMINISTRATION OF RITUXIMAB
     Route: 042
     Dates: start: 20140408, end: 20140730
  6. RITUXIMAB [Suspect]
     Active Substance: RITUXIMAB
     Dosage: VISIT 6?DOS INTENDED: 668 MG
     Route: 042
     Dates: start: 20140611
  7. RITUXIMAB [Suspect]
     Active Substance: RITUXIMAB
     Indication: DIFFUSE LARGE B-CELL LYMPHOMA
     Dosage: VISIT 2?DOSE INTENDED: 1400 MG
     Route: 058
     Dates: start: 20140422, end: 20140701
  8. RITUXIMAB [Suspect]
     Active Substance: RITUXIMAB
     Dosage: VISIT 4?DOSE INTENDED: 1400 MG
     Route: 058
     Dates: start: 20140521
  9. DOXORUBICIN [Suspect]
     Active Substance: DOXORUBICIN
     Indication: DIFFUSE LARGE B-CELL LYMPHOMA
     Route: 042
     Dates: start: 20140409, end: 20140522
  10. CLEMASTIN [Concomitant]
     Active Substance: CLEMASTINE
     Indication: PROPHYLAXIS
     Dosage: BEFORE ADMINISTRATION OF RITUXIMAB
     Route: 042
     Dates: start: 20140408, end: 20140730
  11. RITUXIMAB [Suspect]
     Active Substance: RITUXIMAB
     Dosage: VISIT 7?DOS INTENDED: 669 MG
     Route: 042
     Dates: start: 20140702
  12. RITUXIMAB [Suspect]
     Active Substance: RITUXIMAB
     Dosage: VISIT 8?DOS INTENDED: 625 MG
     Route: 042
     Dates: start: 20140721
  13. PREDNISONE. [Suspect]
     Active Substance: PREDNISONE
     Indication: DIFFUSE LARGE B-CELL LYMPHOMA
     Route: 048
     Dates: start: 20140409, end: 20140707
  14. CYCLOPHOSPHAMIDE. [Suspect]
     Active Substance: CYCLOPHOSPHAMIDE
     Indication: DIFFUSE LARGE B-CELL LYMPHOMA
     Route: 042
     Dates: start: 20140409, end: 20140522
  15. CYCLOPHOSPHAMIDE. [Suspect]
     Active Substance: CYCLOPHOSPHAMIDE
     Route: 042
     Dates: start: 20140703, end: 20140704
  16. ENOXAPARIN NATRIUM [Concomitant]
     Indication: DEEP VEIN THROMBOSIS
     Route: 058
     Dates: start: 20140327
  17. PANTOPRAZOLE [Concomitant]
     Active Substance: PANTOPRAZOLE SODIUM
     Indication: GASTRIC ULCER
     Route: 048
     Dates: start: 20140326
  18. GRANISETRON [Concomitant]
     Active Substance: GRANISETRON
     Indication: NAUSEA
     Dosage: BEFORE ADMINISTRATION OF RITUXIMAB
     Route: 042
     Dates: start: 20140409
  19. DOXORUBICIN [Suspect]
     Active Substance: DOXORUBICIN
     Route: 042
     Dates: start: 20140703, end: 20140704
  20. LENOGRASTIM [Concomitant]
     Active Substance: LENOGRASTIM
     Indication: NAUSEA
     Route: 058
     Dates: start: 20140414
  21. RITUXIMAB [Suspect]
     Active Substance: RITUXIMAB
     Dosage: VISIT 3?DOSE INTENDED: 1400 MG
     Route: 058
     Dates: start: 20140507
  22. DOXORUBICIN [Suspect]
     Active Substance: DOXORUBICIN
     Route: 042
     Dates: start: 20140612, end: 20140613
  23. RANITIDIN [Concomitant]
     Active Substance: RANITIDINE HYDROCHLORIDE
     Indication: PROPHYLAXIS
     Dosage: BEFORE ADMINISTRATION OF RITUXIMAB
     Route: 042
     Dates: start: 20140408, end: 20140730

REACTIONS (3)
  - Asthenia [Recovered/Resolved]
  - Pyrexia [Recovered/Resolved]
  - Progressive multifocal leukoencephalopathy [Recovered/Resolved]

NARRATIVE: CASE EVENT DATE: 201406
